FAERS Safety Report 11547513 (Version 2)
Quarter: 2015Q4

REPORT INFORMATION
  Report Type: Report from Study
  Country: US (occurrence: US)
  Receive Date: 20150924
  Receipt Date: 20151011
  Transmission Date: 20160304
  Serious: No
  Sender: FDA-Public Use
  Company Number: US-AMGEN-USASP2015097709

PATIENT
  Age: 62 Year
  Sex: Female

DRUGS (1)
  1. ENBREL [Suspect]
     Active Substance: ETANERCEPT
     Indication: PSORIASIS
     Dosage: 50 MG, QWK
     Route: 065
     Dates: start: 2014

REACTIONS (18)
  - Dry skin [Unknown]
  - Insomnia [Unknown]
  - Skin plaque [Not Recovered/Not Resolved]
  - Clumsiness [Unknown]
  - Erythema [Unknown]
  - Skin exfoliation [Unknown]
  - Stab wound [Unknown]
  - Visual impairment [Unknown]
  - Drug effect incomplete [Not Recovered/Not Resolved]
  - Skin discolouration [Unknown]
  - Injection site reaction [Unknown]
  - Pruritus [Unknown]
  - Myopia [Unknown]
  - Skin atrophy [Unknown]
  - Coordination abnormal [Unknown]
  - Poor quality sleep [Unknown]
  - Injection site pain [Unknown]
  - Drug dose omission [Unknown]

NARRATIVE: CASE EVENT DATE: 201509
